FAERS Safety Report 9225141 (Version 1)
Quarter: 2013Q2

REPORT INFORMATION
  Report Type: Spontaneous
  Country: FR (occurrence: FR)
  Receive Date: 20130411
  Receipt Date: 20130411
  Transmission Date: 20140414
  Serious: Yes (Other)
  Sender: FDA-Public Use
  Company Number: FR-JNJFOC-20130304543

PATIENT
  Age: 74 Year
  Sex: Male
  Weight: 95 kg

DRUGS (7)
  1. ZYTIGA [Suspect]
     Indication: PROSTATE CANCER
     Route: 048
     Dates: start: 20121205, end: 20130207
  2. EUPANTOL [Concomitant]
     Indication: GASTROOESOPHAGEAL REFLUX DISEASE
     Route: 048
  3. OLMETEC [Concomitant]
     Indication: HYPERTENSION
     Route: 048
  4. CARDENSIEL [Concomitant]
     Indication: HYPERTENSION
     Route: 048
  5. LASILIX [Concomitant]
     Indication: CARDIAC FAILURE
     Route: 048
  6. PREVISCAN (FLUINDIONE) [Concomitant]
     Route: 048
  7. CORTANCYL [Concomitant]
     Route: 065

REACTIONS (3)
  - Cardiac failure [Unknown]
  - Acute pulmonary oedema [Unknown]
  - Atrial fibrillation [Unknown]
